FAERS Safety Report 24058690 (Version 1)
Quarter: 2024Q3

REPORT INFORMATION
  Report Type: Spontaneous
  Country: GB (occurrence: GB)
  Receive Date: 20240708
  Receipt Date: 20240708
  Transmission Date: 20241016
  Serious: Yes (Life-Threatening, Other)
  Sender: UCB
  Company Number: None

PATIENT
  Age: 64 Year
  Sex: Female

DRUGS (3)
  1. KEPPRA [Suspect]
     Active Substance: LEVETIRACETAM
     Indication: Product used for unknown indication
     Dosage: UNK
  2. TEGRETOL [Suspect]
     Active Substance: CARBAMAZEPINE
     Indication: Epilepsy
     Dosage: 400 MG, BID (2 IN THE MORNING, 2 IN THE AFTERNOON)
  3. TEGRETOL [Suspect]
     Active Substance: CARBAMAZEPINE
     Dosage: 200 MG

REACTIONS (5)
  - Insomnia [Unknown]
  - Depression [Unknown]
  - Panic attack [Unknown]
  - Drug dependence [Unknown]
  - Product availability issue [Unknown]
